FAERS Safety Report 17386831 (Version 3)
Quarter: 2021Q1

REPORT INFORMATION
  Report Type: Spontaneous
  Country: US (occurrence: US)
  Receive Date: 20200206
  Receipt Date: 20210304
  Transmission Date: 20210419
  Serious: No
  Sender: FDA-Public Use
  Company Number: US-BAUSCH-BL-2020-001701

PATIENT
  Age: 69 Year
  Sex: Female
  Weight: 61.74 kg

DRUGS (7)
  1. RENOVA [Suspect]
     Active Substance: TRETINOIN
     Indication: SKIN WRINKLING
     Dosage: USED IN PAST
     Route: 065
  2. LAMOTRIGINE. [Concomitant]
     Active Substance: LAMOTRIGINE
     Indication: PRODUCT USED FOR UNKNOWN INDICATION
     Dosage: AS DIRECTED
     Route: 048
  3. CITALOPRAM [Concomitant]
     Active Substance: CITALOPRAM HYDROBROMIDE
     Indication: PRODUCT USED FOR UNKNOWN INDICATION
     Dosage: AS DIRECTED
     Route: 048
  4. RENOVA [Suspect]
     Active Substance: TRETINOIN
     Indication: ACNE
     Route: 061
     Dates: start: 20191001, end: 2019
  5. RENOVA [Suspect]
     Active Substance: TRETINOIN
     Dosage: REPLACEMENT PRODUCT USED FOR OVER 10 WEEKS
     Route: 061
     Dates: start: 202001, end: 2020
  6. RENOVA [Suspect]
     Active Substance: TRETINOIN
     Indication: CYST
     Dosage: STOPPED USING THE PRODUCT APPROXIMATELY THREE WEEKS AGO
     Route: 061
     Dates: start: 2019, end: 201912
  7. ADVIL [Concomitant]
     Active Substance: IBUPROFEN
     Indication: PRODUCT USED FOR UNKNOWN INDICATION
     Dosage: AS NEEDED
     Route: 048

REACTIONS (10)
  - Application site exfoliation [Recovered/Resolved]
  - Skin burning sensation [Recovered/Resolved]
  - Skin disorder [Unknown]
  - Inappropriate schedule of product administration [Unknown]
  - Application site erythema [Recovered/Resolved]
  - Paraesthesia [Recovered/Resolved]
  - Dry skin [Unknown]
  - Drug ineffective [Unknown]
  - Insurance issue [Unknown]
  - Off label use [Unknown]

NARRATIVE: CASE EVENT DATE: 2019
